FAERS Safety Report 10068036 (Version 2)
Quarter: 2014Q2

REPORT INFORMATION
  Report Type: Spontaneous
  Country: US (occurrence: US)
  Receive Date: 20140409
  Receipt Date: 20140508
  Transmission Date: 20141212
  Serious: Yes (Hospitalization)
  Sender: FDA-Public Use
  Company Number: PHEH2014US006769

PATIENT
  Age: 37 Year
  Sex: Male

DRUGS (3)
  1. CLOZARIL [Suspect]
     Dosage: 400 MG, UNK
  2. DEPAKOTE [Concomitant]
     Dosage: 500 UKN, UNK
  3. PERPHENAZINE [Concomitant]
     Dosage: 32 MG, UNK

REACTIONS (2)
  - Gastrointestinal haemorrhage [Unknown]
  - Neutrophil count increased [Unknown]
